FAERS Safety Report 7999584-6 (Version None)
Quarter: 2011Q4

REPORT INFORMATION
  Report Type: 
  Country: None (occurrence: None)
  Receive Date: 20111221
  Receipt Date: 20111215
  Transmission Date: 20120403
  Serious: No
  Sender: FDA-Public Use
  Company Number: US-PFIZER INC-2011211899

PATIENT
  Sex: Male

DRUGS (2)
  1. SUTENT [Suspect]
     Indication: RENAL CELL CARCINOMA
     Dosage: 50 MG, UNK
     Route: 048
  2. SUTENT [Suspect]
     Dosage: 37.5 MG, 1X/DAY, X  28 DAYS
     Route: 048
     Dates: start: 20110704

REACTIONS (3)
  - GENITAL RASH [None]
  - ERYTHEMA [None]
  - GROIN PAIN [None]
